FAERS Safety Report 9998289 (Version 1)
Quarter: 2014Q1

REPORT INFORMATION
  Report Type: Report from Study
  Country: CA (occurrence: CA)
  Receive Date: 20140312
  Receipt Date: 20140312
  Transmission Date: 20141002
  Serious: Yes (Death, Hospitalization)
  Sender: FDA-Public Use
  Company Number: CA-JNJFOC-20140304146

PATIENT
  Sex: Female

DRUGS (2)
  1. TYLENOL ANALGESIC UNKNOWN [Suspect]
     Route: 065
  2. TYLENOL ANALGESIC UNKNOWN [Suspect]
     Indication: PRODUCT USED FOR UNKNOWN INDICATION
     Route: 065
     Dates: start: 19970904, end: 19970918

REACTIONS (6)
  - Acute hepatic failure [Fatal]
  - Acute respiratory distress syndrome [Unknown]
  - Pneumonia [Unknown]
  - Sepsis [Unknown]
  - Gastrointestinal haemorrhage [Unknown]
  - Overdose [Unknown]
